FAERS Safety Report 5982057-X (Version None)
Quarter: 2008Q4

REPORT INFORMATION
  Report Type: 
  Country: None (occurrence: None)
  Receive Date: 20081202
  Receipt Date: 20081117
  Transmission Date: 20090506
  Serious: Yes (Other)
  Sender: FDA-Public Use
  Company Number: 430017J07USA

PATIENT
  Age: 41 Year
  Sex: Male

DRUGS (1)
  1. NOVANTRONE [Suspect]
     Indication: MULTIPLE SCLEROSIS
     Dosage: 12 MG/M2
     Dates: start: 20041001, end: 20070209

REACTIONS (2)
  - CARDIAC VALVE DISEASE [None]
  - EJECTION FRACTION DECREASED [None]
